FAERS Safety Report 6160868-8 (Version None)
Quarter: 2009Q2

REPORT INFORMATION
  Report Type: 
  Country: None (occurrence: None)
  Receive Date: 20090420
  Receipt Date: 20090411
  Transmission Date: 20091009
  Serious: Yes (Death)
  Sender: FDA-Public Use
  Company Number: US-SANOFI-SYNTHELABO-A03200901585

PATIENT
  Sex: Male

DRUGS (2)
  1. AMBIEN [Suspect]
     Indication: DRUG USE FOR UNKNOWN INDICATION
     Dosage: UNK
     Route: 048
  2. AMBIEN [Suspect]
     Dosage: TOOK AN EXCESSIVE AMOUNT OF ZOLPIDEM ONCE
     Route: 048

REACTIONS (4)
  - ABNORMAL BEHAVIOUR [None]
  - COMPLETED SUICIDE [None]
  - FEELING OF DESPAIR [None]
  - INTENTIONAL OVERDOSE [None]
